FAERS Safety Report 9066539 (Version 1)
Quarter: 2013Q1

REPORT INFORMATION
  Report Type: Report from Study
  Country: US (occurrence: US)
  Receive Date: 20130131
  Receipt Date: 20130131
  Transmission Date: 20140127
  Serious: No
  Sender: FDA-Public Use
  Company Number: US-ABBOTT-12P-163-1007559-00

PATIENT
  Age: 35 Year
  Sex: Female

DRUGS (2)
  1. HUMIRA [Suspect]
     Indication: PSORIASIS
     Route: 058
     Dates: start: 20120727
  2. JUNEL FE [Concomitant]
     Indication: CONTRACEPTION
     Dosage: DAILY

REACTIONS (4)
  - Bronchitis [Recovering/Resolving]
  - Gastroenteritis viral [Recovering/Resolving]
  - Nasopharyngitis [Recovering/Resolving]
  - Cough [Recovering/Resolving]
